FAERS Safety Report 22286422 (Version 1)
Quarter: 2023Q2

REPORT INFORMATION
  Report Type: Spontaneous
  Country: US (occurrence: US)
  Receive Date: 20230505
  Receipt Date: 20230505
  Transmission Date: 20230721
  Serious: No
  Sender: FDA-Public Use
  Company Number: US-JNJFOC-20230508896

PATIENT

DRUGS (2)
  1. RYBREVANT [Suspect]
     Active Substance: AMIVANTAMAB-VMJW
     Indication: Product used for unknown indication
     Dosage: 50 ML/HOUR
     Route: 065
     Dates: start: 20230503
  2. RYBREVANT [Suspect]
     Active Substance: AMIVANTAMAB-VMJW
     Dosage: 25 ML/HOUR
     Route: 065
     Dates: start: 20230503

REACTIONS (4)
  - Infusion related reaction [Recovering/Resolving]
  - Flushing [Recovering/Resolving]
  - Chest discomfort [Recovering/Resolving]
  - Nausea [Recovering/Resolving]

NARRATIVE: CASE EVENT DATE: 20230503
